FAERS Safety Report 5197703-0 (Version None)
Quarter: 2007Q1

REPORT INFORMATION
  Report Type: 
  Country: None (occurrence: None)
  Receive Date: 20070103
  Receipt Date: 20061221
  Transmission Date: 20070707
  Serious: Yes (Hospitalization)
  Sender: FDA-Public Use
  Company Number: US-JNJFOC-20061206052

PATIENT
  Sex: Male

DRUGS (1)
  1. ULTRAM SR [Suspect]
     Indication: DRUG USE FOR UNKNOWN INDICATION
     Route: 048

REACTIONS (4)
  - HALLUCINATION [None]
  - MALAISE [None]
  - MUSCLE TWITCHING [None]
  - SPEECH DISORDER [None]
